FAERS Safety Report 10050965 (Version 1)
Quarter: 2014Q2

REPORT INFORMATION
  Report Type: Spontaneous
  Country: FR (occurrence: FR)
  Receive Date: 20140401
  Receipt Date: 20140401
  Transmission Date: 20141212
  Serious: Yes (Hospitalization)
  Sender: FDA-Public Use
  Company Number: FR-GLAXOSMITHKLINE-B0979820A

PATIENT
  Age: 45 Year
  Sex: Female

DRUGS (13)
  1. ZOPHREN [Suspect]
     Indication: PROPHYLAXIS
     Dosage: 4MG THREE TIMES PER DAY
     Route: 048
     Dates: start: 20131106, end: 20131110
  2. COVERSYL [Suspect]
     Indication: HYPERTENSION
     Dosage: 10MG PER DAY
     Route: 048
     Dates: start: 2012, end: 20131109
  3. BACLOFENE [Suspect]
     Indication: ALCOHOLISM
     Dosage: 40MG FOUR TIMES PER DAY
     Route: 048
     Dates: start: 2013, end: 20131109
  4. ONBREZ [Suspect]
     Indication: ASTHMA
     Dosage: 300MCG PER DAY
     Route: 055
     Dates: end: 20131109
  5. HYDROCORTISONE [Suspect]
     Dosage: 500MG PER DAY
     Route: 042
     Dates: start: 20131106, end: 20131109
  6. PROFENID [Suspect]
     Dosage: 50MG TWICE PER DAY
     Route: 048
     Dates: start: 20131107, end: 20131112
  7. PROZAC [Concomitant]
  8. LYSANXIA [Concomitant]
  9. ZOLPIDEM [Concomitant]
  10. ACUPAN [Concomitant]
     Dates: start: 20131106
  11. MORPHINE [Concomitant]
     Dates: start: 20131107
  12. TERBUTALINE [Concomitant]
     Dates: start: 20131106
  13. IPRATROPIUM [Concomitant]
     Dates: start: 20131106

REACTIONS (4)
  - Acute interstitial pneumonitis [Recovered/Resolved]
  - Dyspnoea [Recovered/Resolved]
  - Oxygen saturation decreased [Recovered/Resolved]
  - Blood gases abnormal [Recovered/Resolved]
